FAERS Safety Report 5720175-1 (Version None)
Quarter: 2008Q2

REPORT INFORMATION
  Report Type: 
  Country: None (occurrence: None)
  Receive Date: 20080428
  Receipt Date: 20070723
  Transmission Date: 20081010
  Serious: No
  Sender: FDA-Public Use
  Company Number: US-AMGEN-US235456

PATIENT
  Sex: Female
  Weight: 62 kg

DRUGS (13)
  1. SENSIPAR [Suspect]
     Indication: HYPERPARATHYROIDISM SECONDARY
     Route: 048
     Dates: start: 20051221
  2. SENSIPAR [Suspect]
     Route: 048
     Dates: start: 20060301
  3. SENSIPAR [Suspect]
     Route: 048
     Dates: start: 20060609
  4. SENSIPAR [Suspect]
     Route: 048
     Dates: start: 20060708
  5. ZEMPLAR [Concomitant]
     Route: 065
     Dates: start: 20051201
  6. NEXIUM [Concomitant]
     Route: 065
     Dates: start: 20051209
  7. EPOGEN [Concomitant]
     Dates: start: 20070604
  8. VENOFER [Concomitant]
     Route: 065
     Dates: start: 20061228, end: 20070517
  9. FOLIC ACID [Concomitant]
     Dates: start: 20051202, end: 20060107
  10. FOSRENOL [Concomitant]
     Route: 065
  11. PAXIL [Concomitant]
     Route: 065
     Dates: start: 20051210
  12. TOPROL-XL [Concomitant]
     Route: 065
     Dates: start: 20051207
  13. NORGESTIMATE AND ETHINYL ESTRADIOL [Concomitant]
     Route: 065
     Dates: start: 20051212

REACTIONS (5)
  - ABDOMINAL DISTENSION [None]
  - DYSPHAGIA [None]
  - GASTRITIS [None]
  - NAUSEA [None]
  - VOMITING [None]
